FAERS Safety Report 23708077 (Version 1)
Quarter: 2024Q2

REPORT INFORMATION
  Report Type: Spontaneous
  Country: CH (occurrence: CH)
  Receive Date: 20240404
  Receipt Date: 20240404
  Transmission Date: 20240715
  Serious: Yes (Hospitalization)
  Sender: FDA-Public Use
  Company Number: None

PATIENT
  Age: 69 Year
  Sex: Female

DRUGS (29)
  1. EMEND [Suspect]
     Active Substance: APREPITANT
     Indication: Chemotherapy
     Dosage: 125 MG, QD  (DOSE EVERY 1 DAY)
     Route: 048
     Dates: start: 20240227, end: 20240227
  2. EMEND [Suspect]
     Active Substance: APREPITANT
     Dosage: 125 MG, QD (DOSE EVERY 1 DAY)
     Route: 048
     Dates: start: 20240308, end: 20240308
  3. EMEND [Suspect]
     Active Substance: APREPITANT
     Dosage: 80 MG, QD (DOSE EVERY 1 DAY)
     Route: 048
     Dates: start: 20240228, end: 20240228
  4. EMEND [Suspect]
     Active Substance: APREPITANT
     Dosage: 80 MG, QD (DOSE EVERY 1 DAY)
     Route: 048
     Dates: start: 20240229, end: 20240229
  5. EMEND [Suspect]
     Active Substance: APREPITANT
     Dosage: 80 MG, QD (DOSE EVERY 1 DAY)
     Route: 048
     Dates: start: 20240309, end: 20240309
  6. EMEND [Suspect]
     Active Substance: APREPITANT
     Dosage: 80 MG, QD (DOSE EVERY 1 DAY)
     Route: 048
     Dates: start: 20240310, end: 20240310
  7. DARIFENACIN HYDROBROMIDE [Suspect]
     Active Substance: DARIFENACIN HYDROBROMIDE
     Indication: Hypertonic bladder
     Dosage: 0-0-1-0, SEIT MIND. 10.11.2023
     Route: 048
     Dates: start: 20231110
  8. PALONOSETRON [Suspect]
     Active Substance: PALONOSETRON
     Indication: Chemotherapy
     Dosage: 0.25 MG, QD (DOSE EVERY 1 DAY)
     Route: 041
     Dates: start: 20240227, end: 20240228
  9. PALONOSETRON [Suspect]
     Active Substance: PALONOSETRON
     Dosage: 0.25 MG, QD (DOSE EVERY 1 DAY)
     Route: 041
     Dates: start: 20240308, end: 20240308
  10. VINORELBINE [Suspect]
     Active Substance: VINORELBINE TARTRATE
     Indication: Lung squamous cell carcinoma stage II
     Dosage: 1. ZYKLUS ; CYCLICAL
     Route: 041
     Dates: start: 20240227, end: 20240227
  11. VINORELBINE [Suspect]
     Active Substance: VINORELBINE TARTRATE
     Dosage: 2. ZYKLUS, (ANSTELLE GEPLANTER GABE AM 05.03.2024)(INSGESAMT GEPLANT SIND 4 ZYKLEN JEWEILS A 3 W...
     Route: 041
     Dates: start: 20240308, end: 20240308
  12. ATORVASTATIN\EZETIMIBE [Concomitant]
     Active Substance: ATORVASTATIN\EZETIMIBE
     Indication: Product used for unknown indication
     Dosage: 1-0-0-0
     Route: 048
  13. CISPLATIN [Concomitant]
     Active Substance: CISPLATIN
     Indication: Squamous cell carcinoma
     Dosage: 1. ZYKLUS ; CYCLICAL
     Route: 041
     Dates: start: 20240227, end: 20240227
  14. CISPLATIN [Concomitant]
     Active Substance: CISPLATIN
     Dosage: 2. ZYKLUS, (ANSTELLE GEPLANTER GABE AM 05.03.2024)(INSGESAMT GEPLANT SIND 4 ZYKLEN JEWEILS A 3 W...
     Route: 041
     Dates: start: 20240308, end: 20240308
  15. DAFALGAN [Concomitant]
     Active Substance: ACETAMINOPHEN
     Indication: Product used for unknown indication
     Dosage: 500 MG (1-1-1-1)
     Route: 048
  16. DEXAMETHASONE [Concomitant]
     Active Substance: DEXAMETHASONE
     Indication: Squamous cell carcinoma
     Dosage: 12 MG, QD (DOSE EVERY 1 DAY)
     Route: 048
     Dates: start: 20240227, end: 20240227
  17. DEXAMETHASONE [Concomitant]
     Active Substance: DEXAMETHASONE
     Dosage: 12 MG, QD (DOSE EVERY 1 DAY)
     Route: 048
     Dates: start: 20240308, end: 20240308
  18. DEXAMETHASONE [Concomitant]
     Active Substance: DEXAMETHASONE
     Dosage: 8 MG, QD (DOSE EVERY 1 DAY)
     Route: 048
     Dates: start: 20240228, end: 20240229
  19. DEXAMETHASONE [Concomitant]
     Active Substance: DEXAMETHASONE
     Dosage: 8 MG, QD (DOSE EVERY 1 DAY)
     Route: 048
     Dates: start: 20240301, end: 20240301
  20. DEXAMETHASONE [Concomitant]
     Active Substance: DEXAMETHASONE
     Dosage: 8 MG, QD (DOSE EVERY 1 DAY)
     Route: 048
     Dates: start: 20240309, end: 20240310
  21. CALCIUM CARBONATE\CHOLECALCIFEROL [Concomitant]
     Active Substance: CALCIUM CARBONATE\CHOLECALCIFEROL
     Indication: Product used for unknown indication
     Dosage: 500MG/800 E
     Route: 065
  22. METFORMIN HYDROCHLORIDE [Concomitant]
     Active Substance: METFORMIN HYDROCHLORIDE
     Indication: Product used for unknown indication
     Dosage: 500 MG (0-0-1-0)
     Route: 048
  23. Novalgin [Concomitant]
     Indication: Product used for unknown indication
     Dosage: 500 MG (2-2-2-2)
     Route: 048
  24. PERINDOPRIL [Concomitant]
     Active Substance: PERINDOPRIL
     Indication: Product used for unknown indication
     Dosage: 1-0-0-0
     Route: 048
  25. PREGABALIN [Concomitant]
     Active Substance: PREGABALIN
     Indication: Product used for unknown indication
     Dosage: 50 MG (0-0-0-1)
     Route: 048
  26. PERINDOPRIL [Concomitant]
     Active Substance: PERINDOPRIL
     Indication: Product used for unknown indication
     Dosage: 1-0-0-0
     Route: 048
  27. OLODATEROL HYDROCHLORIDE\TIOTROPIUM BROMIDE MONOHYDRATE [Concomitant]
     Active Substance: OLODATEROL HYDROCHLORIDE\TIOTROPIUM BROMIDE MONOHYDRATE
     Indication: Product used for unknown indication
     Dosage: 2.5MCG/HUB, 0-0-1-0
     Route: 065
  28. ZYPREXA [Concomitant]
     Active Substance: OLANZAPINE
     Indication: Squamous cell carcinoma
     Dosage: 5 MG, QD (DOSE EVERY 1 DAY)
     Route: 048
     Dates: start: 20240227, end: 20240229
  29. ZYPREXA [Concomitant]
     Active Substance: OLANZAPINE
     Dosage: 5 MG, QD (DOSE EVERY 1 DAY)
     Route: 048
     Dates: start: 20240308, end: 20240310

REACTIONS (1)
  - Faecaloma [Recovered/Resolved]

NARRATIVE: CASE EVENT DATE: 20240306
